FAERS Safety Report 6544005-3 (Version None)
Quarter: 2010Q1

REPORT INFORMATION
  Report Type: 
  Country: None (occurrence: None)
  Receive Date: 20100119
  Receipt Date: 20100119
  Transmission Date: 20100710
  Serious: Yes (Other)
  Sender: FDA-Public Use
  Company Number: None

PATIENT
  Age: 9 Year
  Sex: Female
  Weight: 28.7581 kg

DRUGS (2)
  1. ROLAIDS [Suspect]
     Indication: MINERAL SUPPLEMENTATION
     Dosage: 550MG/110MG CALCIUM/MAGNESIUM 2-3 CHEWS DAILY PO
     Route: 048
     Dates: start: 20091201, end: 20091220
  2. ROLAIDS TAB [Suspect]
     Indication: MINERAL SUPPLEMENTATION
     Dosage: 675MG/135MG CALCIUM/MAGNESIUM 2-3 CHEWS DAILY PO
     Route: 048
     Dates: start: 20091221, end: 20100115

REACTIONS (5)
  - DIARRHOEA HAEMORRHAGIC [None]
  - HAEMATOCHEZIA [None]
  - PRODUCT ODOUR ABNORMAL [None]
  - PRODUCT QUALITY ISSUE [None]
  - PRODUCT TASTE ABNORMAL [None]
